FAERS Safety Report 9680083 (Version 4)
Quarter: 2014Q1

REPORT INFORMATION
  Report Type: Report from Study
  Country: JP (occurrence: JP)
  Receive Date: 20131111
  Receipt Date: 20140216
  Transmission Date: 20141002
  Serious: Yes (Hospitalization, Other)
  Sender: FDA-Public Use
  Company Number: JP-PFIZER INC-2013318433

PATIENT
  Age: 87 Year
  Sex: Female
  Weight: 35 kg

DRUGS (13)
  1. CELECOX [Suspect]
     Indication: RHEUMATOID ARTHRITIS
     Dosage: 100 MG, 2X/DAY
     Route: 048
  2. PROGRAF [Suspect]
     Indication: RHEUMATOID ARTHRITIS
     Dosage: 1 MG, 1X/DAY
     Route: 048
     Dates: start: 20121212
  3. ORENCIA [Suspect]
     Indication: RHEUMATOID ARTHRITIS
     Dosage: 500 MG, PER 4 WEEKS, OCCASIONALLY AT INTERVALS OF MORE THAN 4 WEEKS
     Route: 065
  4. LENDORMIN [Suspect]
     Indication: INSOMNIA
     Dosage: 0.25 MG, 1X/DAY
     Route: 048
     Dates: start: 20120627
  5. ROZEREM [Suspect]
     Indication: INSOMNIA
     Dosage: 8 MG, 1X/DAY
     Route: 048
     Dates: start: 20121114
  6. VESICARE [Concomitant]
     Dosage: UNK
  7. TEPRENONE [Concomitant]
     Dosage: UNK
     Dates: start: 20120822
  8. BAYASPIRIN [Concomitant]
     Dosage: UNK
  9. CONIEL [Concomitant]
     Dosage: UNK
     Dates: end: 20130419
  10. ITOROL [Concomitant]
     Dosage: UNK
     Dates: end: 20130419
  11. NEXIUM [Concomitant]
     Dosage: UNK
  12. EURODIN [Concomitant]
     Dosage: UNK
     Route: 048
  13. MARZULENE S [Concomitant]
     Dosage: UNK

REACTIONS (3)
  - Pneumonia [Recovering/Resolving]
  - Femoral neck fracture [Not Recovered/Not Resolved]
  - Angina pectoris [Recovering/Resolving]
